FAERS Safety Report 25964902 (Version 2)
Quarter: 2025Q4

REPORT INFORMATION
  Report Type: Spontaneous
  Country: CO (occurrence: CO)
  Receive Date: 20251027
  Receipt Date: 20251113
  Transmission Date: 20260118
  Serious: Yes (Disabling, Other)
  Sender: NOVARTIS
  Company Number: CO-002147023-NVSC2025CO163173

PATIENT
  Sex: Male

DRUGS (2)
  1. TEGRETOL [Suspect]
     Active Substance: CARBAMAZEPINE
     Indication: Epilepsy
     Dosage: 400 MG, BID (IN THE MORNING AND AT NIGHT) (MORE THAN 30 YEARS)
     Route: 065
  2. CARBAMAZEPINE [Suspect]
     Active Substance: CARBAMAZEPINE
     Indication: Product used for unknown indication
     Dosage: 400 MG
     Route: 065

REACTIONS (7)
  - Seizure [Unknown]
  - Dizziness [Unknown]
  - Migraine [Unknown]
  - Somnolence [Unknown]
  - Nausea [Unknown]
  - Product availability issue [Unknown]
  - Drug intolerance [Unknown]
